FAERS Safety Report 19939836 (Version 1)
Quarter: 2021Q4

REPORT INFORMATION
  Report Type: Spontaneous
  Country: US (occurrence: US)
  Receive Date: 20211011
  Receipt Date: 20211011
  Transmission Date: 20220303
  Serious: Yes (Hospitalization)
  Sender: FDA-Public Use
  Company Number: US-PFIZER INC-202101287768

PATIENT
  Age: 54 Year
  Sex: Male

DRUGS (2)
  1. VFEND [Suspect]
     Active Substance: VORICONAZOLE
     Dosage: 350 MG, Q (EVERY) 12
     Route: 048
  2. VFEND [Suspect]
     Active Substance: VORICONAZOLE
     Dosage: 250MG PER 35ML, 2X/DAY (Q (EVERY) 12H)
     Route: 042

REACTIONS (2)
  - Complications of transplant surgery [Unknown]
  - Off label use [Unknown]
